FAERS Safety Report 12648228 (Version 2)
Quarter: 2016Q4

REPORT INFORMATION
  Report Type: Spontaneous
  Country: BR (occurrence: BR)
  Receive Date: 20160812
  Receipt Date: 20161103
  Transmission Date: 20170207
  Serious: Yes (Other)
  Sender: FDA-Public Use
  Company Number: PHHY2016BR107538

PATIENT
  Sex: Female
  Weight: 63 kg

DRUGS (2)
  1. LOSARTAN. [Concomitant]
     Active Substance: LOSARTAN
     Indication: HYPERTENSION
     Route: 065
  2. SERTRALINE HYDROCHLORIDE. [Suspect]
     Active Substance: SERTRALINE HYDROCHLORIDE
     Indication: DEPRESSION
     Dosage: 50 MG, BID
     Route: 048
     Dates: end: 201608

REACTIONS (13)
  - Blood pressure increased [Unknown]
  - Vision blurred [Unknown]
  - Decreased appetite [Unknown]
  - Malaise [Unknown]
  - Abdominal distension [Unknown]
  - Suicide attempt [Unknown]
  - Suicidal ideation [Unknown]
  - Diabetes mellitus [Unknown]
  - Abdominal pain upper [Unknown]
  - Bladder pain [Unknown]
  - Headache [Unknown]
  - Crying [Unknown]
  - Nausea [Unknown]
